FAERS Safety Report 20161007 (Version 3)
Quarter: 2022Q1

REPORT INFORMATION
  Report Type: Report from Study
  Country: CA (occurrence: CA)
  Receive Date: 20211208
  Receipt Date: 20220207
  Transmission Date: 20220424
  Serious: Yes (Other)
  Sender: FDA-Public Use
  Company Number: CA-SAARTEMIS-SAC202012170651

PATIENT
  Age: 63 Year
  Sex: Female

DRUGS (11)
  1. DUPILUMAB [Suspect]
     Active Substance: DUPILUMAB
     Indication: Asthma
     Dosage: 600 MG, 1X
     Route: 058
  2. DUPILUMAB [Suspect]
     Active Substance: DUPILUMAB
     Dosage: 300 MG, QOW
     Route: 058
     Dates: start: 2016
  3. DUPILUMAB [Suspect]
     Active Substance: DUPILUMAB
     Dosage: 300 MG, QOW
     Route: 058
     Dates: start: 20201229
  4. ZENHALE [Concomitant]
     Active Substance: FORMOTEROL FUMARATE\MOMETASONE FUROATE
  5. MONTELUKAST [Concomitant]
     Active Substance: MONTELUKAST SODIUM
  6. ADVAIR HFA [Concomitant]
     Active Substance: FLUTICASONE PROPIONATE\SALMETEROL XINAFOATE
  7. BUPROPION [Concomitant]
     Active Substance: BUPROPION
  8. LYRICA [Concomitant]
     Active Substance: PREGABALIN
  9. BUTRANS [Concomitant]
     Active Substance: BUPRENORPHINE
     Dosage: UNK
  10. VENTOLIN [Concomitant]
     Active Substance: ALBUTEROL SULFATE
  11. FLUCONAZOLE [Concomitant]
     Active Substance: FLUCONAZOLE

REACTIONS (10)
  - Laryngeal oedema [Not Recovered/Not Resolved]
  - Basophil count increased [Unknown]
  - Erythroblast count increased [Unknown]
  - Lymphocyte count decreased [Unknown]
  - Dysphonia [Not Recovered/Not Resolved]
  - Aphonia [Unknown]
  - Oropharyngeal pain [Not Recovered/Not Resolved]
  - Hip surgery [Unknown]
  - Product use issue [Unknown]
  - Biopsy vocal cord [Unknown]

NARRATIVE: CASE EVENT DATE: 20180426
